FAERS Safety Report 25169272 (Version 3)
Quarter: 2025Q2

REPORT INFORMATION
  Report Type: Spontaneous
  Country: US (occurrence: US)
  Receive Date: 20250407
  Receipt Date: 20250611
  Transmission Date: 20250717
  Serious: Yes (Other)
  Sender: JOURNEY MEDICAL CORPORATION
  Company Number: US-JOURNEY MEDICAL CORPORATION-2025JNY00048

PATIENT
  Sex: Female

DRUGS (1)
  1. QBREXZA [Suspect]
     Active Substance: GLYCOPYRRONIUM TOSYLATE
     Indication: Hyperhidrosis

REACTIONS (11)
  - Anaphylactic reaction [Recovered/Resolved]
  - Urinary retention [Recovered/Resolved]
  - Throat tightness [Recovered/Resolved]
  - Dizziness [Recovered/Resolved]
  - Dysphagia [Recovered/Resolved]
  - Dyspnoea [Recovered/Resolved]
  - Vertigo [Recovering/Resolving]
  - Nausea [Recovering/Resolving]
  - Urticaria [Recovered/Resolved]
  - Gait disturbance [Recovered/Resolved]
  - Performance status decreased [Recovering/Resolving]

NARRATIVE: CASE EVENT DATE: 20250101
